FAERS Safety Report 23582874 (Version 1)
Quarter: 2024Q1

REPORT INFORMATION
  Report Type: Spontaneous
  Country: US (occurrence: US)
  Receive Date: 20240301
  Receipt Date: 20240301
  Transmission Date: 20240410
  Serious: No
  Sender: FDA-Public Use
  Company Number: US-STRIDES ARCOLAB LIMITED-2024SP000486

PATIENT
  Age: 23 Year
  Sex: Female

DRUGS (4)
  1. POTASSIUM CHLORIDE [Suspect]
     Active Substance: POTASSIUM CHLORIDE
     Indication: Electrolyte imbalance
     Dosage: UNK
     Route: 065
  2. PROPRANOLOL [Suspect]
     Active Substance: PROPRANOLOL HYDROCHLORIDE
     Indication: Thyroid function test abnormal
     Dosage: UNK
     Route: 065
  3. METHIMAZOLE [Suspect]
     Active Substance: METHIMAZOLE
     Indication: Thyroid function test abnormal
     Dosage: UNK
     Route: 065
  4. THIAMINE [Suspect]
     Active Substance: THIAMINE
     Indication: Vitamin B1 decreased
     Dosage: UNK
     Route: 042

REACTIONS (1)
  - Maternal exposure during pregnancy [Unknown]
